FAERS Safety Report 11518229 (Version 2)
Quarter: 2015Q4

REPORT INFORMATION
  Report Type: Spontaneous
  Country: ES (occurrence: ES)
  Receive Date: 20150917
  Receipt Date: 20151015
  Transmission Date: 20160304
  Serious: Yes (Congenital Anomaly, Other)
  Sender: FDA-Public Use
  Company Number: ES-GILEAD-2015-0171553

PATIENT
  Sex: Male

DRUGS (2)
  1. KALETRA [Suspect]
     Active Substance: LOPINAVIR\RITONAVIR
     Indication: HIV INFECTION
     Dosage: UNK
     Route: 064
     Dates: start: 20100601
  2. TRUVADA [Suspect]
     Active Substance: EMTRICITABINE\TENOFOVIR DISOPROXIL FUMARATE
     Indication: HIV INFECTION
     Route: 064
     Dates: start: 20100601

REACTIONS (2)
  - Mental retardation [Not Recovered/Not Resolved]
  - Gene mutation [Not Recovered/Not Resolved]

NARRATIVE: CASE EVENT DATE: 20100601
